FAERS Safety Report 19242399 (Version 2)
Quarter: 2021Q4

REPORT INFORMATION
  Report Type: Report from Study
  Country: DE (occurrence: DE)
  Receive Date: 20210511
  Receipt Date: 20211027
  Transmission Date: 20220303
  Serious: Yes (Hospitalization)
  Sender: FDA-Public Use
  Company Number: DE-002147023-PHHY2019DE123456

PATIENT

DRUGS (13)
  1. RUXOLITINIB [Suspect]
     Active Substance: RUXOLITINIB
     Indication: Polycythaemia vera
     Dosage: 15 MG, BID
     Route: 048
     Dates: start: 20180704, end: 20180724
  2. RUXOLITINIB [Suspect]
     Active Substance: RUXOLITINIB
     Dosage: 20 MG, BID
     Route: 048
     Dates: start: 20180725, end: 20190522
  3. RUXOLITINIB [Suspect]
     Active Substance: RUXOLITINIB
     Dosage: 15 MG, BID
     Route: 048
     Dates: start: 20190523
  4. DULOXETINE [Suspect]
     Active Substance: DULOXETINE
     Indication: Product used for unknown indication
     Dosage: 10 MG
     Route: 048
     Dates: start: 20190425, end: 20190502
  5. MARCUMAR [Concomitant]
     Active Substance: PHENPROCOUMON
     Indication: Thrombosis
     Dosage: 9 OT, UNK
     Route: 048
  6. DULOXETINE HYDROCHLORIDE [Concomitant]
     Active Substance: DULOXETINE HYDROCHLORIDE
     Indication: Diabetic neuropathy
     Dosage: 30 MG, QD
     Route: 048
  7. CLINDAMYCIN PHOSPHATE\TRETINOIN [Concomitant]
     Active Substance: CLINDAMYCIN PHOSPHATE\TRETINOIN
     Indication: Skin disorder
     Dosage: 10 MG, QD
     Route: 048
  8. ROSICED [Concomitant]
     Indication: Skin disorder
     Dosage: 7.5 MG, QD
     Route: 048
  9. BETNESOL V [Concomitant]
     Indication: Skin disorder
     Dosage: 0.1 %, QW
     Route: 048
  10. PRAMIPEXOLE [Concomitant]
     Active Substance: PRAMIPEXOLE
     Indication: Restless legs syndrome
     Dosage: 0.18 MG, QD
     Route: 048
  11. VALSARTAN [Concomitant]
     Active Substance: VALSARTAN
     Indication: Hypertension
     Dosage: UNK (1-0-1/2)
     Route: 048
  12. GLUCOSAMIN [GLUCOSAMINE] [Concomitant]
     Indication: Arthropathy
     Dosage: 1200 OT
     Route: 048
  13. DOXYDERMA [Concomitant]
     Indication: Skin disorder
     Dosage: 50 MG, QD
     Route: 048

REACTIONS (2)
  - Dyspnoea exertional [Recovered/Resolved]
  - Weight increased [Not Recovered/Not Resolved]

NARRATIVE: CASE EVENT DATE: 20190423
